FAERS Safety Report 6582664-X (Version None)
Quarter: 2010Q1

REPORT INFORMATION
  Report Type: 
  Country: None (occurrence: None)
  Receive Date: 20100216
  Receipt Date: 20100204
  Transmission Date: 20100710
  Serious: Yes (Other)
  Sender: FDA-Public Use
  Company Number: CH-BAYER-201015701GPV

PATIENT
  Age: 34 Year
  Sex: Female

DRUGS (5)
  1. YASMIN [Suspect]
     Indication: CONTRACEPTION
     Dosage: LONGTERM USE
     Route: 048
     Dates: end: 20091127
  2. GYNOCANESTEN [Suspect]
     Indication: VULVOVAGINAL MYCOTIC INFECTION
     Route: 061
     Dates: start: 20091108, end: 20091114
  3. DIFLUCAN [Suspect]
     Indication: VULVOVAGINAL MYCOTIC INFECTION
     Dosage: TOTAL DAILY DOSE: 150 MG
     Route: 065
     Dates: start: 20091108, end: 20091108
  4. GYNO PEVARYL [Concomitant]
     Route: 061
     Dates: start: 20091108, end: 20091114
  5. PANDEMRIX [Concomitant]
     Indication: INFLUENZA IMMUNISATION
     Route: 030
     Dates: start: 20091113, end: 20091113

REACTIONS (1)
  - PREGNANCY ON ORAL CONTRACEPTIVE [None]
